FAERS Safety Report 10991601 (Version 3)
Quarter: 2018Q2

REPORT INFORMATION
  Report Type: Spontaneous
  Country: FR (occurrence: FR)
  Receive Date: 20150406
  Receipt Date: 20180409
  Transmission Date: 20180711
  Serious: Yes (Death, Other)
  Sender: FDA-Public Use
  Company Number: FR-PFIZER INC-2015115726

PATIENT
  Age: 96 Year
  Sex: Male

DRUGS (8)
  1. SPAGULAX [Suspect]
     Active Substance: PLANTAGO OVATA SEED
     Dosage: UNK
     Route: 065
  2. TRIMETAZIDINE DIHYDROCHLORIDE [Suspect]
     Active Substance: TRIMETAZIDINE DIHYDROCHLORIDE
     Dosage: UNK
     Route: 048
     Dates: end: 200908
  3. INEXIUM /01479302/ [Suspect]
     Active Substance: ESOMEPRAZOLE MAGNESIUM
     Dosage: UNK
     Route: 048
     Dates: end: 200908
  4. TRIATEC (RAMIPRIL) [Suspect]
     Active Substance: RAMIPRIL
     Dosage: UNK
     Route: 048
  5. FUROSEMIDE. [Suspect]
     Active Substance: FUROSEMIDE
     Dosage: UNK
     Route: 048
  6. KARDEGIC [Suspect]
     Active Substance: ASPIRIN DL-LYSINE
     Dosage: UNK
     Route: 048
     Dates: end: 200908
  7. MEBEVERINE [Suspect]
     Active Substance: MEBEVERINE
     Dosage: UNK
     Route: 065
  8. PERMIXON [Suspect]
     Active Substance: HERBALS\SAW PALMETTO
     Dosage: UNK
     Route: 065

REACTIONS (2)
  - Cholestasis [Fatal]
  - Jaundice [Fatal]

NARRATIVE: CASE EVENT DATE: 200908
